FAERS Safety Report 9362926 (Version 2)
Quarter: 2013Q3

REPORT INFORMATION
  Report Type: Spontaneous
  Country: GB (occurrence: GB)
  Receive Date: 20130624
  Receipt Date: 20130722
  Transmission Date: 20140515
  Serious: Yes (Hospitalization)
  Sender: FDA-Public Use
  Company Number: GB-ROCHE-1239970

PATIENT
  Sex: Female
  Weight: 91 kg

DRUGS (3)
  1. HERCEPTIN [Suspect]
     Indication: BREAST CANCER
     Route: 065
  2. PERJETA [Suspect]
     Indication: BREAST CANCER
     Route: 065
  3. TAMOXIFEN [Concomitant]
     Route: 048

REACTIONS (1)
  - Acute febrile neutrophilic dermatosis [Recovering/Resolving]
